FAERS Safety Report 7465831-2 (Version None)
Quarter: 2011Q2

REPORT INFORMATION
  Report Type: 
  Country: None (occurrence: None)
  Receive Date: 20110509
  Receipt Date: 20100420
  Transmission Date: 20111010
  Serious: No
  Sender: FDA-Public Use
  Company Number: US-ALEXION-A201000454

PATIENT
  Sex: Male

DRUGS (7)
  1. SOLIRIS [Suspect]
     Indication: PAROXYSMAL NOCTURNAL HAEMOGLOBINURIA
     Dosage: 600 MG, QWKX4
     Route: 042
     Dates: start: 20100402, end: 20100423
  2. METOPROLOL TARTRATE [Concomitant]
     Indication: HEART RATE INCREASED
     Dosage: 30 MG, 1/2 IN AM AND 1/2 IN PM
     Route: 048
  3. PROTONIX [Concomitant]
     Indication: GASTROOESOPHAGEAL REFLUX DISEASE
     Dosage: UNK
     Route: 048
  4. VITAMIN B12                        /00056201/ [Concomitant]
     Dosage: ONCE A MONTH
  5. EXJADE [Concomitant]
     Dosage: UNK
     Route: 048
     Dates: end: 20100401
  6. FOLIC ACID [Concomitant]
     Indication: PAROXYSMAL NOCTURNAL HAEMOGLOBINURIA
     Dosage: UNK
     Route: 048
  7. CYCLOSPORINE [Concomitant]
     Dosage: UNK
     Route: 048
     Dates: end: 20100401

REACTIONS (1)
  - FATIGUE [None]
